FAERS Safety Report 18679166 (Version 1)
Quarter: 2020Q4

REPORT INFORMATION
  Report Type: Spontaneous
  Country: CN (occurrence: CN)
  Receive Date: 20201229
  Receipt Date: 20201229
  Transmission Date: 20210114
  Serious: Yes (Hospitalization, Other)
  Sender: FDA-Public Use
  Company Number: CN-PFIZER INC-2020508793

PATIENT
  Age: 86 Year
  Sex: Male
  Weight: 66 kg

DRUGS (3)
  1. TYGACIL [Suspect]
     Active Substance: TIGECYCLINE
     Indication: PNEUMONIA
  2. TYGACIL [Suspect]
     Active Substance: TIGECYCLINE
     Indication: ANTI-INFECTIVE THERAPY
     Dosage: 100 MG, 2X/DAY (Q12H)
     Route: 041
     Dates: start: 20201208, end: 20201212
  3. TYGACIL [Suspect]
     Active Substance: TIGECYCLINE
     Indication: SEPTIC SHOCK

REACTIONS (1)
  - Acute hepatic failure [Not Recovered/Not Resolved]

NARRATIVE: CASE EVENT DATE: 20201212
